FAERS Safety Report 19705325 (Version 2)
Quarter: 2021Q3

REPORT INFORMATION
  Report Type: Spontaneous
  Country: US (occurrence: US)
  Receive Date: 20210816
  Receipt Date: 20210927
  Transmission Date: 20211014
  Serious: Yes (Other)
  Sender: FDA-Public Use
  Company Number: US-BAYER-2021-193667

PATIENT
  Sex: Female

DRUGS (1)
  1. SKYLA [Suspect]
     Active Substance: LEVONORGESTREL
     Indication: INTRA-UTERINE CONTRACEPTIVE DEVICE INSERTION
     Dosage: 14 ?G, CONT
     Route: 015
     Dates: start: 20190617, end: 20200706

REACTIONS (3)
  - Abdominal pain lower [Recovered/Resolved]
  - Medical device pain [Recovered/Resolved]
  - Genital haemorrhage [Recovered/Resolved]
